FAERS Safety Report 7981622-8 (Version None)
Quarter: 2011Q4

REPORT INFORMATION
  Report Type: 
  Country: None (occurrence: None)
  Receive Date: 20111215
  Receipt Date: 20111208
  Transmission Date: 20120403
  Serious: Yes (Other)
  Sender: FDA-Public Use
  Company Number: US-BRISTOL-MYERS SQUIBB COMPANY-16279531

PATIENT
  Sex: Female

DRUGS (2)
  1. CORTISONE ACETATE [Concomitant]
  2. ORENCIA [Suspect]
     Indication: RHEUMATOID ARTHRITIS

REACTIONS (2)
  - DRUG INEFFECTIVE [None]
  - FIBROMYALGIA [None]
